FAERS Safety Report 15920163 (Version 1)
Quarter: 2019Q1

REPORT INFORMATION
  Report Type: Spontaneous
  Country: DE (occurrence: DE)
  Receive Date: 20190205
  Receipt Date: 20190205
  Transmission Date: 20190417
  Serious: Yes (Hospitalization)
  Sender: FDA-Public Use
  Company Number: DE-PFIZER INC-2019051743

PATIENT
  Age: 62 Year
  Sex: Male
  Weight: 50 kg

DRUGS (3)
  1. ADDEL TRACE [Suspect]
     Active Substance: ELECTROLYTES NOS\MINERALS
     Indication: PARENTERAL NUTRITION
     Dosage: 10 ML, DAILY
     Route: 042
  2. CERNEVIT [Suspect]
     Active Substance: VITAMINS
     Indication: PARENTERAL NUTRITION
     Dosage: 10 ML, DAILY
     Route: 042
  3. MORPHINE SULFATE. [Suspect]
     Active Substance: MORPHINE SULFATE
     Dosage: UNK
     Route: 065

REACTIONS (5)
  - Pain [Unknown]
  - Confusional state [Unknown]
  - Metastasis [Unknown]
  - General physical health deterioration [Unknown]
  - Hypophagia [Unknown]

NARRATIVE: CASE EVENT DATE: 20190107
